FAERS Safety Report 19658778 (Version 2)
Quarter: 2021Q3

REPORT INFORMATION
  Report Type: Spontaneous
  Country: US (occurrence: US)
  Receive Date: 20210804
  Receipt Date: 20210901
  Transmission Date: 20211014
  Serious: No
  Sender: FDA-Public Use
  Company Number: US-PFIZER INC-2021090747

PATIENT
  Age: 59 Year
  Sex: Female
  Weight: 103.86 kg

DRUGS (1)
  1. LORBRENA [Suspect]
     Active Substance: LORLATINIB
     Indication: BRAIN CANCER METASTATIC
     Dosage: 100 MG

REACTIONS (1)
  - Weight increased [Not Recovered/Not Resolved]
